FAERS Safety Report 5753667-X (Version None)
Quarter: 2008Q2

REPORT INFORMATION
  Report Type: 
  Country: None (occurrence: None)
  Receive Date: 20080521
  Receipt Date: 20080521
  Transmission Date: 20081010
  Serious: Yes (Hospitalization)
  Sender: FDA-Public Use
  Company Number: None

PATIENT
  Sex: Male
  Weight: 78.8 kg

DRUGS (4)
  1. VINORELBINE [Suspect]
     Indication: TRANSITIONAL CELL CARCINOMA
     Dosage: 49 MG D1,D8,D15/CYCLE 042
     Route: 042
     Dates: start: 20080519
  2. VYTORIN [Concomitant]
  3. LISINOPRIL [Concomitant]
  4. ATENOLOL [Concomitant]

REACTIONS (1)
  - PULMONARY EMBOLISM [None]
